FAERS Safety Report 8960454 (Version 1)
Quarter: 2012Q4

REPORT INFORMATION
  Report Type: Spontaneous
  Country: US (occurrence: None)
  Receive Date: 20121211
  Receipt Date: 20121211
  Transmission Date: 20130627
  Serious: Yes (Hospitalization)
  Sender: FDA-Public Use
  Company Number: None

PATIENT
  Age: 78 Year
  Sex: Female
  Weight: 65.77 kg

DRUGS (1)
  1. AVELOX [Suspect]
     Indication: ACUTE BRONCHITIS
     Dosage: 400 mg 1 x day
     Dates: start: 20121127

REACTIONS (5)
  - Pruritus generalised [None]
  - Nausea [None]
  - Dry throat [None]
  - Oropharyngeal pain [None]
  - Blood pressure decreased [None]
